FAERS Safety Report 17632406 (Version 2)
Quarter: 2020Q2

REPORT INFORMATION
  Report Type: Spontaneous
  Country: JP (occurrence: JP)
  Receive Date: 20200406
  Receipt Date: 20200415
  Transmission Date: 20200713
  Serious: Yes (Other)
  Sender: FDA-Public Use
  Company Number: NVSC2020JP093316

PATIENT
  Age: 35 Year
  Sex: Female

DRUGS (3)
  1. NOVASTAN [Suspect]
     Active Substance: ARGATROBAN
     Indication: ANTICOAGULANT THERAPY
     Dosage: 10 ML
     Route: 065
  2. HEPARIN [Suspect]
     Active Substance: HEPARIN SODIUM
     Indication: PRODUCT USED FOR UNKNOWN INDICATION
     Dosage: UNK
     Route: 065
  3. WARFARIN POTASSIUM [Suspect]
     Active Substance: WARFARIN POTASSIUM
     Indication: ANTICOAGULANT THERAPY
     Dosage: UNK
     Route: 065

REACTIONS (2)
  - Cerebral artery occlusion [Recovered/Resolved]
  - Haemorrhagic infarction [Recovering/Resolving]
